FAERS Safety Report 21171923 (Version 3)
Quarter: 2022Q3

REPORT INFORMATION
  Report Type: Spontaneous
  Country: US (occurrence: US)
  Receive Date: 20220804
  Receipt Date: 20220822
  Transmission Date: 20221027
  Serious: No
  Sender: FDA-Public Use
  Company Number: US-PFIZER INC-202201029339

PATIENT
  Age: 77 Year
  Sex: Male

DRUGS (6)
  1. PAXLOVID [Suspect]
     Active Substance: NIRMATRELVIR\RITONAVIR
     Indication: COVID-19 treatment
     Dosage: UNK, DAILY (20 X 150 MG AND 10 X 100 MG AS DIRECTED ORALLY DAILY, 5 DAYS, 20)
     Route: 048
     Dates: start: 20220721, end: 20220726
  2. OMEPRAZOLE [Concomitant]
     Active Substance: OMEPRAZOLE
     Dosage: 40 MG, 1X/DAY (30 MINUTES BEFORE MORMING MEAL ORALLY, 90 DAYS)
     Route: 048
  3. DICLOFENAC POTASSIUM [Concomitant]
     Active Substance: DICLOFENAC POTASSIUM
     Indication: Pain
     Dosage: 50 MG, 2X/DAY (1 TABLET WITH FOOD OR MILK AS NEEDED ORALLY TWICE A DAY- PRN FOR PAIN, 10 DAYS)
     Route: 048
  4. TIZANIDINE HYDROCHLORIDE [Concomitant]
     Active Substance: TIZANIDINE HYDROCHLORIDE
     Dosage: 2 MG, 3X/DAY (1 TABLET AS NEEDED ORALLY, 7 DAYS, 21 TABLET)
     Route: 048
  5. ALLOPURINOL [Concomitant]
     Active Substance: ALLOPURINOL
     Dosage: 100 MG, 1X/DAY (1 TABLET ORALLY, 90 DAYS, 90 TABLET)
     Route: 048
  6. LISINOPRIL AND HYDROCHLOROTHIAZIDE [Concomitant]
     Active Substance: HYDROCHLOROTHIAZIDE\LISINOPRIL
     Dosage: UNK, DAILY (10-12.5 MG TAKE ONE TABLET BY MOUTH EVERY DAY, 90, 90 TABLET)

REACTIONS (2)
  - COVID-19 [Recovered/Resolved]
  - Disease recurrence [Recovered/Resolved]

NARRATIVE: CASE EVENT DATE: 20220802
